FAERS Safety Report 9643374 (Version 1)
Quarter: 2013Q4

REPORT INFORMATION
  Report Type: Spontaneous
  Country: US (occurrence: US)
  Receive Date: 20131024
  Receipt Date: 20131024
  Transmission Date: 20140711
  Serious: No
  Sender: FDA-Public Use
  Company Number: US-TEVA-406804USA

PATIENT
  Sex: Female

DRUGS (1)
  1. DIPYRIDAMOLE [Suspect]

REACTIONS (4)
  - Pain [Unknown]
  - Neck pain [Unknown]
  - Myalgia [Unknown]
  - Fatigue [Unknown]
